FAERS Safety Report 8401007-X (Version None)
Quarter: 2012Q2

REPORT INFORMATION
  Report Type: 
  Country: None (occurrence: None)
  Receive Date: 20120601
  Receipt Date: 20120523
  Transmission Date: 20120825
  Serious: No
  Sender: FDA-Public Use
  Company Number: US-BIOGENIDEC-2012BI018337

PATIENT
  Sex: Female

DRUGS (2)
  1. AVONEX [Suspect]
     Indication: MULTIPLE SCLEROSIS
     Route: 030
     Dates: start: 20080603, end: 20080804
  2. AVONEX [Suspect]
     Route: 030
     Dates: start: 20110414, end: 20110101

REACTIONS (1)
  - COGNITIVE DISORDER [None]
